FAERS Safety Report 20443668 (Version 2)
Quarter: 2022Q1

REPORT INFORMATION
  Report Type: Spontaneous
  Country: US (occurrence: US)
  Receive Date: 20220208
  Receipt Date: 20220303
  Transmission Date: 20220423
  Serious: Yes (Other)
  Sender: FDA-Public Use
  Company Number: US-GW PHARMA-202202USGW00529

PATIENT
  Sex: Male

DRUGS (1)
  1. EPIDIOLEX [Suspect]
     Active Substance: CANNABIDIOL
     Indication: Seizure
     Dosage: 340 MILLIGRAM, BID (FIRST SHIPPED ON 31-JUL-2019)
     Route: 048
     Dates: start: 2019

REACTIONS (2)
  - Skin laceration [Unknown]
  - Seizure [Unknown]
